FAERS Safety Report 5518262-6 (Version None)
Quarter: 2007Q4

REPORT INFORMATION
  Report Type: 
  Country: None (occurrence: None)
  Receive Date: 20071115
  Receipt Date: 20071108
  Transmission Date: 20080405
  Serious: Yes (Hospitalization)
  Sender: FDA-Public Use
  Company Number: B0492755A

PATIENT
  Age: 60 Year
  Sex: Male

DRUGS (2)
  1. DUTASTERIDE [Suspect]
     Indication: BENIGN PROSTATIC HYPERPLASIA
     Dosage: 1CAP PER DAY
     Route: 048
     Dates: start: 20040929
  2. ASPIRIN [Concomitant]
     Indication: PROPHYLAXIS
     Dosage: 75MG PER DAY
     Route: 048
     Dates: start: 20070921

REACTIONS (1)
  - CHEST PAIN [None]
